FAERS Safety Report 12577639 (Version 2)
Quarter: 2016Q3

REPORT INFORMATION
  Report Type: Spontaneous
  Country: HR (occurrence: HR)
  Receive Date: 20160720
  Receipt Date: 20160722
  Transmission Date: 20161109
  Serious: Yes (Life-Threatening, Hospitalization, Other)
  Sender: FDA-Public Use
  Company Number: HR-ASTRAZENECA-2016SE75783

PATIENT
  Age: 40 Year
  Sex: Female

DRUGS (7)
  1. SEROXAT [Suspect]
     Active Substance: PAROXETINE HYDROCHLORIDE
     Dosage: 27 TABLETS A 20 MG
     Route: 048
     Dates: start: 20160111, end: 20160111
  2. SEROQUEL XR [Suspect]
     Active Substance: QUETIAPINE FUMARATE
     Dosage: 37 TABLETS A 400 MG
     Route: 048
     Dates: start: 20160111, end: 20160111
  3. TEGRETOL [Suspect]
     Active Substance: CARBAMAZEPINE
     Dosage: 43 TABLETS A 200 MG
     Route: 048
     Dates: start: 20160111, end: 20160111
  4. DULOXETINE. [Suspect]
     Active Substance: DULOXETINE
     Dosage: 17 TABLETS A 60 MG
     Route: 048
     Dates: start: 20160111, end: 20160111
  5. APAURIN [Suspect]
     Active Substance: DIAZEPAM
     Dosage: 5 MG 20 TABLE
     Route: 048
     Dates: start: 20160111, end: 20160111
  6. MODITEN [Suspect]
     Active Substance: FLUPHENAZINE HYDROCHLORIDE
     Dosage: 37 TABLETS A 2.5 MG
     Route: 048
     Dates: start: 20160111, end: 20160111
  7. LEPONEX [Suspect]
     Active Substance: CLOZAPINE
     Dosage: 55 TABLETS A 25 MG
     Route: 048
     Dates: start: 20160111, end: 20160111

REACTIONS (4)
  - Loss of consciousness [Unknown]
  - Suicide attempt [Unknown]
  - Respiratory failure [Unknown]
  - Intentional overdose [Unknown]

NARRATIVE: CASE EVENT DATE: 20160111
